FAERS Safety Report 9943136 (Version 2)
Quarter: 2014Q1

REPORT INFORMATION
  Report Type: Spontaneous
  Country: CA (occurrence: CA)
  Receive Date: 20140303
  Receipt Date: 20140328
  Transmission Date: 20141002
  Serious: No
  Sender: FDA-Public Use
  Company Number: CA-GLAXOSMITHKLINE-A1061693A

PATIENT
  Sex: Female

DRUGS (1)
  1. AVANDAMET [Suspect]
     Indication: DIABETES MELLITUS
     Route: 065
     Dates: start: 200602, end: 2006

REACTIONS (4)
  - Oedema [Unknown]
  - Visual acuity reduced [Unknown]
  - Laser therapy [Unknown]
  - Depression [Unknown]
